FAERS Safety Report 4281842-2 (Version None)
Quarter: 2004Q1

REPORT INFORMATION
  Report Type: 
  Country: None (occurrence: None)
  Receive Date: 20040128
  Receipt Date: 20040121
  Transmission Date: 20041129
  Serious: Yes (Death)
  Sender: FDA-Public Use
  Company Number: 200312960DE

PATIENT
  Age: 35 Year
  Sex: Female

DRUGS (2)
  1. PENTOXIFYLLINE [Suspect]
     Indication: SUDDEN HEARING LOSS
     Dosage: IV
     Route: 042
     Dates: start: 20031112, end: 20031114
  2. PENTOXIFYLLINE [Suspect]
     Indication: SUDDEN HEARING LOSS
     Dosage: IV
     Route: 042
     Dates: start: 20031117, end: 20031117

REACTIONS (1)
  - DEATH [None]
